FAERS Safety Report 17747274 (Version 1)
Quarter: 2020Q2

REPORT INFORMATION
  Report Type: Spontaneous
  Country: US (occurrence: US)
  Receive Date: 20200505
  Receipt Date: 20200505
  Transmission Date: 20200714
  Serious: Yes (Other)
  Sender: FDA-Public Use
  Company Number: US-BAYER-2020-073728

PATIENT
  Age: 86 Year

DRUGS (4)
  1. KLONOPIN [Concomitant]
     Active Substance: CLONAZEPAM
  2. PSYLLIUM HYDROPHILIC MUCILLOID [Concomitant]
     Active Substance: PSYLLIUM HUSK
  3. CODEINE COMPOUND [CODEINE PHOSPHATE;PARACETAMOL] [Concomitant]
     Indication: PAIN
  4. MIRALAX [Suspect]
     Active Substance: POLYETHYLENE GLYCOL 3350
     Indication: GASTROINTESTINAL DISORDER
     Route: 048
     Dates: start: 20200423, end: 20200429

REACTIONS (2)
  - Infrequent bowel movements [Not Recovered/Not Resolved]
  - Rectal haemorrhage [Not Recovered/Not Resolved]
